FAERS Safety Report 11263566 (Version 1)
Quarter: 2015Q3

REPORT INFORMATION
  Report Type: Spontaneous
  Country: GB (occurrence: GB)
  Receive Date: 20150713
  Receipt Date: 20150713
  Transmission Date: 20151125
  Serious: Yes (Other)
  Sender: FDA-Public Use
  Company Number: GB-AMGEN-GBRSP2015021815

PATIENT
  Age: 75 Year
  Sex: Female

DRUGS (5)
  1. VITAMIN D                          /00107901/ [Concomitant]
     Active Substance: ERGOCALCIFEROL
  2. PROLIA [Suspect]
     Active Substance: DENOSUMAB
     Indication: PRODUCT USED FOR UNKNOWN INDICATION
     Dosage: UNK
     Route: 058
     Dates: start: 20150210
  3. CALCICHEW [Concomitant]
     Active Substance: CALCIUM CARBONATE
  4. VITAMIN B [Concomitant]
     Active Substance: VITAMIN B
     Dosage: UNK
  5. CALCIUM [Concomitant]
     Active Substance: CALCIUM
     Dosage: UNK

REACTIONS (18)
  - Tracheal stenosis [Recovered/Resolved]
  - Gait disturbance [Unknown]
  - Confusional state [Recovered/Resolved]
  - Peripheral swelling [Recovered/Resolved]
  - Hypertension [Recovered/Resolved]
  - Decreased appetite [Recovering/Resolving]
  - Renal pain [Recovering/Resolving]
  - Feeling abnormal [Unknown]
  - Blood creatinine abnormal [Recovered/Resolved]
  - Fatigue [Recovering/Resolving]
  - Dry skin [Unknown]
  - Myalgia [Unknown]
  - Abdominal distension [Unknown]
  - Macular degeneration [Not Recovered/Not Resolved]
  - Muscle spasms [Unknown]
  - Dyspnoea [Recovering/Resolving]
  - Pruritus [Unknown]
  - Dysphagia [Recovering/Resolving]

NARRATIVE: CASE EVENT DATE: 2015
